FAERS Safety Report 5633462-2 (Version None)
Quarter: 2008Q1

REPORT INFORMATION
  Report Type: 
  Country: None (occurrence: None)
  Receive Date: 20080221
  Receipt Date: 20080211
  Transmission Date: 20080703
  Serious: Yes (Hospitalization)
  Sender: FDA-Public Use
  Company Number: US-ELI_LILLY_AND_COMPANY-US200701002201

PATIENT
  Sex: Female

DRUGS (9)
  1. CYMBALTA [Suspect]
     Indication: ANXIETY
     Dosage: 20 MG, DAILY (1/D)
     Dates: start: 20060101, end: 20070101
  2. CYMBALTA [Suspect]
     Dosage: 40 MG, DAILY (1/D)
     Dates: start: 20070101
  3. CYMBALTA [Suspect]
     Dosage: 20 MG, 2/D
  4. CYMBALTA [Suspect]
     Dosage: 60 MG, UNK
  5. DIOVAN [Concomitant]
     Indication: BLOOD PRESSURE
  6. ACIPHEX [Concomitant]
  7. EZETIMIBE [Concomitant]
     Indication: BLOOD CHOLESTEROL
  8. SIMVASTATIN [Concomitant]
     Indication: BLOOD CHOLESTEROL
  9. ASPIRIN [Concomitant]

REACTIONS (2)
  - ABSCESS INTESTINAL [None]
  - BLOOD PRESSURE INCREASED [None]
